FAERS Safety Report 24652181 (Version 1)
Quarter: 2024Q4

REPORT INFORMATION
  Report Type: Spontaneous
  Country: FR (occurrence: FR)
  Receive Date: 20241122
  Receipt Date: 20241122
  Transmission Date: 20250114
  Serious: Yes (Hospitalization)
  Sender: ALEXION PHARMACEUTICALS
  Company Number: FR-ASTRAZENECA-202411GLO012690FR

PATIENT
  Age: 38 Year

DRUGS (5)
  1. QUETIAPINE FUMARATE [Suspect]
     Active Substance: QUETIAPINE FUMARATE
     Dosage: 250 MILLIGRAM, SINGLE, 5 TABLETS OF QUETIAPINE 50MG LP
  2. QUETIAPINE FUMARATE [Suspect]
     Active Substance: QUETIAPINE FUMARATE
     Dosage: 200 MILLIGRAM
  3. OLANZAPINE [Suspect]
     Active Substance: OLANZAPINE
     Dosage: 130 MILLIGRAM, SINGLE, 26 TABLETS OF OLANZAPINE 5MG
  4. XANAX [Suspect]
     Active Substance: ALPRAZOLAM
     Dosage: 5 MILLIGRAM, SINGLE, 20 TABLETS OF ALPRAZOLAM 0.25 MG
  5. XANAX [Suspect]
     Active Substance: ALPRAZOLAM
     Dosage: 20 TABLETS OF ALPRAZOLAM 0.25 MG

REACTIONS (4)
  - Toxicity to various agents [Recovered/Resolved]
  - Intentional product misuse [Unknown]
  - Miosis [Unknown]
  - Psychomotor hyperactivity [Unknown]
